FAERS Safety Report 7761204-3 (Version None)
Quarter: 2011Q3

REPORT INFORMATION
  Report Type: 
  Country: None (occurrence: None)
  Receive Date: 20110920
  Receipt Date: 20110906
  Transmission Date: 20111222
  Serious: Yes (Hospitalization, Other)
  Sender: FDA-Public Use
  Company Number: PHHY2011US79568

PATIENT
  Sex: Male
  Weight: 104.9 kg

DRUGS (2)
  1. PREDNISONE [Suspect]
     Dosage: UNK UKN, UNK
  2. MYFORTIC [Suspect]
     Dosage: 360 MG, BID
     Route: 048
     Dates: start: 20100715

REACTIONS (3)
  - FALL [None]
  - URINARY RETENTION [None]
  - HIP FRACTURE [None]
